FAERS Safety Report 21387541 (Version 1)
Quarter: 2022Q3

REPORT INFORMATION
  Report Type: Spontaneous
  Country: BR (occurrence: BR)
  Receive Date: 20220928
  Receipt Date: 20220928
  Transmission Date: 20221026
  Serious: Yes (Hospitalization, Other)
  Sender: FDA-Public Use
  Company Number: BR-JNJFOC-20220856347

PATIENT
  Age: 35 Year
  Sex: Male

DRUGS (1)
  1. RISPERDAL [Suspect]
     Active Substance: RISPERIDONE
     Indication: Schizophrenia
     Route: 048

REACTIONS (8)
  - Drug abuse [Unknown]
  - Schizophrenia [Recovering/Resolving]
  - Psychotic symptom [Recovering/Resolving]
  - Substance use [Unknown]
  - Delusion [Recovering/Resolving]
  - Thinking abnormal [Recovering/Resolving]
  - Antisocial behaviour [Recovering/Resolving]
  - Treatment noncompliance [Unknown]

NARRATIVE: CASE EVENT DATE: 20220801
